FAERS Safety Report 10514501 (Version 3)
Quarter: 2015Q3

REPORT INFORMATION
  Report Type: Spontaneous
  Country: US (occurrence: US)
  Receive Date: 20141013
  Receipt Date: 20150707
  Transmission Date: 20151125
  Serious: Yes (Hospitalization)
  Sender: FDA-Public Use
  Company Number: US-BAYER-2014-149877

PATIENT
  Age: 29 Year
  Sex: Female
  Weight: 123 kg

DRUGS (2)
  1. MIRENA [Suspect]
     Active Substance: LEVONORGESTREL
     Indication: CONTRACEPTION
     Dosage: 20 MCG/24HR, CONT
     Route: 015
     Dates: start: 20130121, end: 20130207
  2. LORTAB [Concomitant]
     Active Substance: ACETAMINOPHEN\HYDROCODONE BITARTRATE
     Indication: PAIN
     Dosage: UNK UNK, PRN

REACTIONS (10)
  - Abdominal discomfort [None]
  - Procedural pain [Not Recovered/Not Resolved]
  - Injury [None]
  - Scar [None]
  - Uterine perforation [None]
  - Emotional distress [Not Recovered/Not Resolved]
  - Fear [Not Recovered/Not Resolved]
  - Abdominal pain [None]
  - Post procedural discomfort [Not Recovered/Not Resolved]
  - Anxiety [Not Recovered/Not Resolved]

NARRATIVE: CASE EVENT DATE: 201302
